FAERS Safety Report 5484527-X (Version None)
Quarter: 2007Q4

REPORT INFORMATION
  Report Type: 
  Country: None (occurrence: None)
  Receive Date: 20071010
  Receipt Date: 20070925
  Transmission Date: 20080405
  Serious: Yes (Hospitalization)
  Sender: FDA-Public Use
  Company Number: 2007S1009367

PATIENT
  Age: 49 Year
  Sex: Female

DRUGS (1)
  1. VERAPAMIL HYDROCHLORIDE [Suspect]
     Dosage: 6000 MG; X1

REACTIONS (13)
  - ATRIOVENTRICULAR BLOCK [None]
  - BRADYCARDIA [None]
  - DEPRESSED LEVEL OF CONSCIOUSNESS [None]
  - DRUG TOXICITY [None]
  - HYPERGLYCAEMIA [None]
  - HYPOCALCAEMIA [None]
  - HYPOTENSION [None]
  - INCORRECT DOSE ADMINISTERED [None]
  - NAUSEA [None]
  - PLEURAL EFFUSION [None]
  - PULMONARY OEDEMA [None]
  - SUICIDE ATTEMPT [None]
  - VOMITING [None]
